FAERS Safety Report 5888182-6 (Version None)
Quarter: 2008Q3

REPORT INFORMATION
  Report Type: 
  Country: None (occurrence: None)
  Receive Date: 20080918
  Receipt Date: 20080911
  Transmission Date: 20090109
  Serious: Yes (Life-Threatening)
  Sender: FDA-Public Use
  Company Number: FR-AVENTIS-200813257FR

PATIENT
  Age: 64 Year
  Sex: Male

DRUGS (8)
  1. FLAGYL [Suspect]
     Route: 048
     Dates: start: 20080626, end: 20080626
  2. CLAMOXYL                           /00249601/ [Suspect]
     Route: 048
     Dates: start: 20080626, end: 20080626
  3. ADVIL [Suspect]
     Route: 048
     Dates: start: 20080626, end: 20080626
  4. ASPEGIC 1000 [Concomitant]
  5. ATENOLOL [Concomitant]
  6. COVERSYL                           /00790701/ [Concomitant]
  7. SIMVASTATIN [Concomitant]
  8. SERETIDE [Concomitant]

REACTIONS (1)
  - ANAPHYLACTIC SHOCK [None]
